FAERS Safety Report 15627976 (Version 1)
Quarter: 2018Q4

REPORT INFORMATION
  Report Type: Spontaneous
  Country: US (occurrence: US)
  Receive Date: 20181116
  Receipt Date: 20181116
  Transmission Date: 20190205
  Serious: Yes (Other)
  Sender: FDA-Public Use
  Company Number: US-PFIZER INC-2018394037

PATIENT
  Age: 88 Year
  Sex: Female

DRUGS (1)
  1. XALKORI [Suspect]
     Active Substance: CRIZOTINIB
     Dosage: UNK

REACTIONS (6)
  - Lung cancer metastatic [Unknown]
  - Hodgkin^s disease [Unknown]
  - Hepatic enzyme increased [Unknown]
  - Thyroid cancer metastatic [Unknown]
  - Cardiac disorder [Unknown]
  - Oedema peripheral [Unknown]
